FAERS Safety Report 7720496-7 (Version None)
Quarter: 2011Q3

REPORT INFORMATION
  Report Type: 
  Country: None (occurrence: None)
  Receive Date: 20110831
  Receipt Date: 20110810
  Transmission Date: 20111222
  Serious: No
  Sender: FDA-Public Use
  Company Number: CO-SANOFI-AVENTIS-2011SA051747

PATIENT
  Age: 30 Year
  Sex: Female

DRUGS (6)
  1. ARAVA [Suspect]
     Route: 048
     Dates: start: 20110516, end: 20110722
  2. METHYLPREDNISOLONE [Concomitant]
     Route: 048
     Dates: start: 20110303, end: 20110715
  3. FOLIC ACID [Concomitant]
     Route: 048
     Dates: start: 20110218, end: 20110810
  4. CALCITRIOL [Concomitant]
  5. DEFLAZACORT [Concomitant]
  6. ARAVA [Suspect]
     Dosage: 100 MG PER DAY FOR FIRST THREE DAYS AND THEN CONTINUES WITH 20 MG PER DAY.
     Route: 048
     Dates: start: 20110513, end: 20110515

REACTIONS (1)
  - MATERNAL EXPOSURE DURING PREGNANCY [None]
